FAERS Safety Report 7333337-7 (Version None)
Quarter: 2011Q1

REPORT INFORMATION
  Report Type: 
  Country: None (occurrence: None)
  Receive Date: 20110304
  Receipt Date: 20110302
  Transmission Date: 20110831
  Serious: Yes (Death)
  Sender: FDA-Public Use
  Company Number: US-AMGEN-USASP2011009895

PATIENT
  Age: 73 Year
  Sex: Male

DRUGS (2)
  1. NPLATE [Suspect]
     Dates: start: 20090915, end: 20100624
  2. NPLATE [Suspect]
     Indication: IDIOPATHIC THROMBOCYTOPENIC PURPURA
     Dosage: 170 A?G, UNK
     Dates: start: 20090915, end: 20100524

REACTIONS (1)
  - RECTAL CANCER [None]
